FAERS Safety Report 19081177 (Version 2)
Quarter: 2021Q2

REPORT INFORMATION
  Report Type: Spontaneous
  Country: CN (occurrence: CN)
  Receive Date: 20210331
  Receipt Date: 20210408
  Transmission Date: 20210717
  Serious: Yes (Hospitalization)
  Sender: FDA-Public Use
  Company Number: CN-US-PROVELL PHARMACEUTICALS LLC-9228321

PATIENT
  Age: 41 Year
  Sex: Female

DRUGS (3)
  1. EUTHYROX [Suspect]
     Active Substance: LEVOTHYROXINE SODIUM
     Dosage: DOSE DECREASED
     Route: 048
     Dates: start: 2021, end: 2021
  2. EUTHYROX [Suspect]
     Active Substance: LEVOTHYROXINE SODIUM
     Indication: POST PROCEDURAL HYPOTHYROIDISM
     Route: 048
     Dates: start: 202011, end: 202101
  3. EUTHYROX [Suspect]
     Active Substance: LEVOTHYROXINE SODIUM
     Dosage: 2 TABLETS A DAY AND 2.25 TABLETS A DAY ALTERNATELY
     Route: 048
     Dates: start: 2021

REACTIONS (6)
  - Cardiac discomfort [Not Recovered/Not Resolved]
  - Palpitations [Recovering/Resolving]
  - Extrasystoles [Recovering/Resolving]
  - Hyperhidrosis [Recovering/Resolving]
  - Blood thyroid stimulating hormone increased [Recovered/Resolved]
  - Tachycardia [Recovering/Resolving]

NARRATIVE: CASE EVENT DATE: 202102
